FAERS Safety Report 8434967-1 (Version None)
Quarter: 2012Q2

REPORT INFORMATION
  Report Type: 
  Country: None (occurrence: None)
  Receive Date: 20120614
  Receipt Date: 20120611
  Transmission Date: 20120825
  Serious: No
  Sender: FDA-Public Use
  Company Number: US-PFIZER INC-2012140351

PATIENT
  Sex: Female
  Weight: 124.26 kg

DRUGS (4)
  1. GENOTROPIN [Suspect]
     Indication: GROWTH HORMONE DEFICIENCY
  2. LOPERAMIDE HYDROCHLORIDE [Suspect]
     Indication: IRRITABLE BOWEL SYNDROME
     Dosage: SEVEN TABLETS, AS NEEDED
     Route: 048
     Dates: start: 20120101
  3. GENOTROPIN [Suspect]
     Indication: TURNER'S SYNDROME
     Dosage: DAILY
     Dates: start: 20120101
  4. LOPERAMIDE HYDROCHLORIDE [Suspect]
     Indication: DIARRHOEA

REACTIONS (3)
  - DIARRHOEA [None]
  - INCORRECT DOSE ADMINISTERED [None]
  - IRRITABLE BOWEL SYNDROME [None]
